FAERS Safety Report 8275225-8 (Version None)
Quarter: 2012Q2

REPORT INFORMATION
  Report Type: 
  Country: None (occurrence: None)
  Receive Date: 20120411
  Receipt Date: 20120403
  Transmission Date: 20120825
  Serious: Yes (Other)
  Sender: FDA-Public Use
  Company Number: GB-BAYER-2012-033180

PATIENT
  Sex: Female

DRUGS (1)
  1. CLOTRIMAZOLE [Suspect]
     Dosage: UNK
     Dates: start: 20120301

REACTIONS (1)
  - CANDIDIASIS [None]
